FAERS Safety Report 9867115 (Version 1)
Quarter: 2014Q1

REPORT INFORMATION
  Report Type: Spontaneous
  Country: US (occurrence: US)
  Receive Date: 20140204
  Receipt Date: 20140204
  Transmission Date: 20141002
  Serious: Yes (Hospitalization)
  Sender: FDA-Public Use
  Company Number: US-BAYER-2014-017046

PATIENT
  Age: 39 Year
  Sex: Female
  Weight: 88.44 kg

DRUGS (13)
  1. YASMIN [Suspect]
  2. HYDROCODONE W/APAP [Concomitant]
     Dosage: 7.5/325 MG
  3. PROPOXYPHENE NAPSYLATE W/ACETAMINOPHENE [Concomitant]
  4. PREDNISONE [Concomitant]
  5. DEMEROL [Concomitant]
     Indication: PAIN
     Dosage: 100 MG, UNK
     Dates: start: 20080313
  6. VISTARIL [Concomitant]
     Indication: PRURITUS
     Dosage: 25 MG, UNK
     Dates: start: 20080313
  7. ANCEF [Concomitant]
     Dosage: 1 G, UNK
     Dates: start: 20080313
  8. BENADRYL [Concomitant]
  9. ALBUTEROL [Concomitant]
     Indication: WHEEZING
     Dosage: 2 PUFFS
  10. MAALOX [Concomitant]
     Indication: DYSPEPSIA
  11. LORTAB [Concomitant]
     Indication: PAIN
     Dosage: 10/500 MG
  12. SOMA [Concomitant]
     Dosage: 350 MG, UNK
  13. NORVASC [Concomitant]
     Indication: HYPERTENSION

REACTIONS (1)
  - Deep vein thrombosis [None]
